FAERS Safety Report 6321557-X (Version None)
Quarter: 2009Q3

REPORT INFORMATION
  Report Type: 
  Country: None (occurrence: None)
  Receive Date: 20090821
  Receipt Date: 20090821
  Transmission Date: 20100115
  Serious: Yes (Death, Hospitalization)
  Sender: FDA-Public Use
  Company Number: None

PATIENT
  Age: 81 Year
  Sex: Male
  Weight: 65.7716 kg

DRUGS (3)
  1. TARCEVA [Suspect]
     Indication: PANCREATIC CARCINOMA
     Dosage: 100 MG - 30 CT. 1 DAILY
     Dates: start: 20090223
  2. TARCEVA [Suspect]
     Indication: PANCREATIC CARCINOMA
     Dosage: 100 MG - 30 CT. 1 DAILY
     Dates: start: 20090309
  3. TARCEVA [Suspect]
     Indication: PANCREATIC CARCINOMA
     Dosage: 100 MG - 30 CT. 1 DAILY
     Dates: start: 20090401

REACTIONS (1)
  - ULCER HAEMORRHAGE [None]
